FAERS Safety Report 14122547 (Version 5)
Quarter: 2017Q4

REPORT INFORMATION
  Report Type: Spontaneous
  Country: US (occurrence: US)
  Receive Date: 20171024
  Receipt Date: 20171122
  Transmission Date: 20180321
  Serious: Yes (Hospitalization)
  Sender: FDA-Public Use
  Company Number: US-ACTELION-A-US2017-161092

PATIENT
  Age: 65 Year
  Sex: Female
  Weight: 91.61 kg

DRUGS (9)
  1. VELETRI [Suspect]
     Active Substance: EPOPROSTENOL
     Dosage: 4 NG/KG, PER MIN
     Route: 042
     Dates: end: 20171013
  2. WELLBUTRIN [Concomitant]
     Active Substance: BUPROPION HYDROCHLORIDE
  3. PROTONIX [Concomitant]
     Active Substance: PANTOPRAZOLE SODIUM
  4. TORSEMIDE. [Concomitant]
     Active Substance: TORSEMIDE
  5. VELETRI [Suspect]
     Active Substance: EPOPROSTENOL
     Indication: PULMONARY ARTERIAL HYPERTENSION
     Dosage: 2 NG/KG, PER MIN
     Route: 042
     Dates: start: 20171012
  6. VELETRI [Suspect]
     Active Substance: EPOPROSTENOL
     Dosage: 3 NG/KG, PER MIN
     Route: 042
     Dates: start: 20171013, end: 201710
  7. METOPROLOL. [Concomitant]
     Active Substance: METOPROLOL
  8. LOVENOX [Concomitant]
     Active Substance: ENOXAPARIN SODIUM
  9. FLONASE [Concomitant]
     Active Substance: FLUTICASONE PROPIONATE

REACTIONS (18)
  - Hypotension [Recovered/Resolved]
  - Fatigue [Unknown]
  - Ascites [Unknown]
  - Peripheral swelling [Unknown]
  - Flushing [Recovered/Resolved]
  - Urinary tract infection [Unknown]
  - Diarrhoea [Unknown]
  - Product quality issue [Unknown]
  - Stress [Unknown]
  - Drug intolerance [Unknown]
  - Therapy cessation [Unknown]
  - Nausea [Unknown]
  - Chest pain [Recovered/Resolved]
  - Abdominal pain upper [Unknown]
  - Disease progression [Unknown]
  - Paracentesis [Unknown]
  - Headache [Unknown]
  - Dyspnoea [Unknown]

NARRATIVE: CASE EVENT DATE: 20171012
